FAERS Safety Report 19007598 (Version 1)
Quarter: 2021Q1

REPORT INFORMATION
  Report Type: Report from Study
  Country: JP (occurrence: JP)
  Receive Date: 20210315
  Receipt Date: 20210315
  Transmission Date: 20210420
  Serious: Yes (Death, Hospitalization)
  Sender: FDA-Public Use
  Company Number: JP-AUROBINDO-AUR-APL-2019-045482

PATIENT
  Age: 69 Year
  Sex: Female
  Weight: 48 kg

DRUGS (12)
  1. POLARAMINE [Concomitant]
     Active Substance: DEXCHLORPHENIRAMINE MALEATE
     Indication: PREMEDICATION
     Dosage: 2 MILLIGRAM
     Route: 048
     Dates: start: 20100518
  2. METHYCOBAL [Concomitant]
     Active Substance: METHYLCOBALAMIN
     Dosage: 1500 MICROGRAM
     Route: 048
  3. ZEVALIN [Suspect]
     Active Substance: IBRITUMOMAB TIUXETAN
     Indication: MANTLE CELL LYMPHOMA STAGE IV
     Dosage: 1 UNK, ONCE A DAY
     Route: 042
     Dates: start: 20100518, end: 20100518
  4. VICCLOX [Concomitant]
     Active Substance: ACYCLOVIR SODIUM
     Indication: PRODUCT USED FOR UNKNOWN INDICATION
     Dosage: 500 MILLIGRAM
     Route: 042
  5. ZEVALIN [Suspect]
     Active Substance: IBRITUMOMAB TIUXETAN
     Indication: NON-HODGKIN^S LYMPHOMA
     Dosage: 150 UNK
     Route: 065
     Dates: start: 20100518, end: 20100518
  6. EKSALB [Concomitant]
     Indication: PRURITUS
  7. RITUXAN [Suspect]
     Active Substance: RITUXIMAB
     Indication: MANTLE CELL LYMPHOMA STAGE IV
     Dosage: 360 MILLIGRAM/SQ. METER,SINGLE
     Route: 042
     Dates: start: 20100518
  8. RITUXAN [Suspect]
     Active Substance: RITUXIMAB
     Dosage: 250 MG/M2, ONCE A DAY
     Route: 041
     Dates: start: 20100518
  9. VICCLOX [Concomitant]
     Active Substance: ACYCLOVIR SODIUM
     Dosage: 750 MILLIGRAM
     Route: 048
  10. METHYCOBAL [Concomitant]
     Active Substance: METHYLCOBALAMIN
     Indication: PRODUCT USED FOR UNKNOWN INDICATION
     Dosage: 1500 MICROGRAM
     Route: 048
  11. EKSALB [Concomitant]
     Indication: BLISTER
     Dosage: UNK
     Route: 061
  12. LOXONIN [Concomitant]
     Active Substance: LOXOPROFEN SODIUM
     Indication: PREMEDICATION
     Dosage: 60 MILLIGRAM, ONCE A DAY
     Route: 048
     Dates: start: 20100518

REACTIONS (2)
  - Disease progression [Fatal]
  - Herpes zoster [Recovered/Resolved]

NARRATIVE: CASE EVENT DATE: 20100522
